FAERS Safety Report 14655789 (Version 1)
Quarter: 2018Q1

REPORT INFORMATION
  Report Type: Spontaneous
  Country: US (occurrence: US)
  Receive Date: 20180317
  Receipt Date: 20180317
  Transmission Date: 20180509
  Serious: No
  Sender: FDA-Public Use
  Company Number: None

PATIENT
  Age: 40 Year
  Sex: Female

DRUGS (1)
  1. CIMZIA [Suspect]
     Active Substance: CERTOLIZUMAB PEGOL
     Indication: SPINAL OSTEOARTHRITIS
     Dosage: 200MG/ML EVERY 14 DAYS SUBCUTANEOUS
     Route: 058
     Dates: start: 20170727

REACTIONS (2)
  - Ulcer [None]
  - Infection [None]

NARRATIVE: CASE EVENT DATE: 2018
